FAERS Safety Report 9023073 (Version 1)
Quarter: 2013Q1

REPORT INFORMATION
  Report Type: Spontaneous
  Country: US (occurrence: US)
  Receive Date: 20130120
  Receipt Date: 20130120
  Transmission Date: 20140127
  Serious: No
  Sender: FDA-Public Use
  Company Number: US-ALLERGAN-1215327US

PATIENT
  Age: 42 Year
  Sex: Male

DRUGS (4)
  1. BOTOX COSMETIC [Suspect]
     Indication: SKIN WRINKLING
     Dosage: 21 UNITS, SINGLE
     Route: 030
     Dates: start: 20121019, end: 20121019
  2. BOTOX COSMETIC [Suspect]
     Indication: SKIN WRINKLING
  3. BOTOX COSMETIC [Suspect]
     Indication: SKIN WRINKLING
  4. STRIANT [Concomitant]
     Indication: HORMONE THERAPY
     Dosage: 30 MG, QD
     Route: 002

REACTIONS (8)
  - Heart rate increased [Recovering/Resolving]
  - Hyperhidrosis [Unknown]
  - Hot flush [Unknown]
  - Tremor [Unknown]
  - Burning sensation [Unknown]
  - Feeling cold [Unknown]
  - Insomnia [Recovering/Resolving]
  - Therapeutic response decreased [Unknown]
